FAERS Safety Report 12645999 (Version 2)
Quarter: 2016Q3

REPORT INFORMATION
  Report Type: Spontaneous
  Country: BR (occurrence: BR)
  Receive Date: 20160811
  Receipt Date: 20160825
  Transmission Date: 20161109
  Serious: Yes (Other)
  Sender: FDA-Public Use
  Company Number: BR-ASTRAZENECA-2016SE85821

PATIENT
  Sex: Male

DRUGS (7)
  1. PLANTA BEM [Concomitant]
     Indication: SUPPLEMENTATION THERAPY
  2. ATACAND [Suspect]
     Active Substance: CANDESARTAN CILEXETIL
     Indication: BLOOD PRESSURE ABNORMAL
     Dosage: 16.0MG UNKNOWN
     Route: 048
  3. BUFFERIN [Concomitant]
     Active Substance: ASPIRIN
     Dosage: 81MG
  4. ALCOHOL. [Interacting]
     Active Substance: ALCOHOL
     Route: 065
  5. DIVELOL [Concomitant]
     Indication: CARDIAC DISORDER
  6. ROSUCOR [Concomitant]
     Active Substance: ROSUVASTATIN CALCIUM
     Indication: BLOOD CHOLESTEROL ABNORMAL
  7. XIGDUO XR [Interacting]
     Active Substance: DAPAGLIFLOZIN PROPANEDIOL\METFORMIN HYDROCHLORIDE
     Indication: TYPE 2 DIABETES MELLITUS
     Dosage: 10/1000 MG
     Route: 048
     Dates: start: 20160728, end: 20160804

REACTIONS (10)
  - Dysuria [Not Recovered/Not Resolved]
  - Weight decreased [Not Recovered/Not Resolved]
  - Genital rash [Not Recovered/Not Resolved]
  - Pollakiuria [Not Recovered/Not Resolved]
  - Hyperglycaemia [Recovering/Resolving]
  - Headache [Not Recovered/Not Resolved]
  - Nausea [Not Recovered/Not Resolved]
  - Genital haemorrhage [Not Recovered/Not Resolved]
  - Thirst [Not Recovered/Not Resolved]
  - Alcohol interaction [Not Recovered/Not Resolved]

NARRATIVE: CASE EVENT DATE: 2016
